FAERS Safety Report 4472875-1 (Version None)
Quarter: 2004Q4

REPORT INFORMATION
  Report Type: 
  Country: None (occurrence: None)
  Receive Date: 20041012
  Receipt Date: 20041012
  Transmission Date: 20050328
  Serious: Yes (Hospitalization, Other)
  Sender: FDA-Public Use
  Company Number: None

PATIENT
  Age: 51 Year
  Sex: Male

DRUGS (1)
  1. ELOXATIN [Suspect]
     Dosage: 130 MG IV OVER 2 HOURS
     Route: 042

REACTIONS (7)
  - ABDOMINAL PAIN [None]
  - BODY TEMPERATURE INCREASED [None]
  - COUGH [None]
  - DYSPNOEA [None]
  - ERYTHEMA [None]
  - OXYGEN SATURATION DECREASED [None]
  - RASH [None]
